FAERS Safety Report 7072288-2 (Version None)
Quarter: 2010Q4

REPORT INFORMATION
  Report Type: 
  Country: None (occurrence: None)
  Receive Date: 20101029
  Receipt Date: 20091230
  Transmission Date: 20110411
  Serious: No
  Sender: FDA-Public Use
  Company Number: A0837422A

PATIENT
  Age: 65 Year
  Sex: Female

DRUGS (5)
  1. ADVAIR DISKUS 100/50 [Suspect]
     Indication: CHRONIC OBSTRUCTIVE PULMONARY DISEASE
     Route: 055
     Dates: start: 20010401, end: 20091216
  2. FORADIL [Suspect]
     Indication: CHRONIC OBSTRUCTIVE PULMONARY DISEASE
     Route: 065
  3. LUMIGAN [Concomitant]
  4. SPIRIVA [Concomitant]
  5. FLUCONAZOLE [Concomitant]

REACTIONS (3)
  - CANDIDIASIS [None]
  - INFLUENZA [None]
  - NASOPHARYNGITIS [None]
